FAERS Safety Report 11214607 (Version 9)
Quarter: 2018Q3

REPORT INFORMATION
  Report Type: Spontaneous
  Country: BR (occurrence: BR)
  Receive Date: 20150624
  Receipt Date: 20180913
  Transmission Date: 20181010
  Serious: Yes (Other)
  Sender: FDA-Public Use
  Company Number: PHHY2015BR075847

PATIENT
  Age: 71 Year
  Sex: Female
  Weight: 62 kg

DRUGS (8)
  1. DIOVAN [Suspect]
     Active Substance: VALSARTAN
     Dosage: 1 UNK, UNK
     Route: 048
  2. PANTOPRAZOLE [Concomitant]
     Active Substance: PANTOPRAZOLE
     Indication: POLYPECTOMY
     Dosage: 2 DF, QD
     Route: 048
     Dates: start: 2006
  3. SUSTRATE [Concomitant]
     Active Substance: PROPATYL NITRATE
     Indication: ANGINA PECTORIS
     Dosage: 1 DF, QD
     Route: 048
     Dates: start: 2006
  4. DIOVAN [Suspect]
     Active Substance: VALSARTAN
     Indication: ANGINA PECTORIS
     Dosage: 2 DF, QD
     Route: 048
     Dates: start: 2006
  5. AVAMYS [Concomitant]
     Active Substance: FLUTICASONE FUROATE
     Indication: RHINITIS
     Dosage: UNK
     Route: 055
     Dates: start: 2017
  6. SEROQUEL [Suspect]
     Active Substance: QUETIAPINE FUMARATE
     Indication: PRODUCT USED FOR UNKNOWN INDICATION
     Dosage: UNK
     Route: 065
     Dates: start: 2006
  7. OLCADIL [Suspect]
     Active Substance: CLOXAZOLAM
     Indication: STRESS
     Dosage: 1 DF, BID (IN THE MORNING AND AT NIGHT) (2 OR 3 TIMES)
     Route: 048
  8. DRAMIN B?6 [Concomitant]
     Active Substance: DIMENHYDRINATE\PYRIDOXINE HYDROCHLORIDE
     Indication: DIZZINESS
     Dosage: 1 DF, BID
     Route: 048

REACTIONS (28)
  - Myocardial infarction [Not Recovered/Not Resolved]
  - Dysphagia [Unknown]
  - Syncope [Not Recovered/Not Resolved]
  - Fall [Unknown]
  - Angina pectoris [Not Recovered/Not Resolved]
  - Pharyngitis [Not Recovered/Not Resolved]
  - Rheumatic fever [Not Recovered/Not Resolved]
  - Laryngeal oedema [Not Recovered/Not Resolved]
  - Dyspnoea [Not Recovered/Not Resolved]
  - Drug dependence [Not Recovered/Not Resolved]
  - Hypertension [Not Recovered/Not Resolved]
  - Oropharyngeal pain [Not Recovered/Not Resolved]
  - General physical health deterioration [Not Recovered/Not Resolved]
  - Hypersensitivity [Not Recovered/Not Resolved]
  - Infarction [Recovered/Resolved]
  - Hepatic steatosis [Not Recovered/Not Resolved]
  - Macular degeneration [Not Recovered/Not Resolved]
  - Emotional disorder [Not Recovered/Not Resolved]
  - Blindness [Not Recovered/Not Resolved]
  - Diarrhoea [Unknown]
  - Nervousness [Unknown]
  - Blood cholesterol increased [Unknown]
  - Wrong technique in product usage process [Not Recovered/Not Resolved]
  - Pharyngeal erythema [Not Recovered/Not Resolved]
  - Influenza [Unknown]
  - Tendon pain [Unknown]
  - Retinal disorder [Not Recovered/Not Resolved]
  - Anxiety [Not Recovered/Not Resolved]

NARRATIVE: CASE EVENT DATE: 2005
